FAERS Safety Report 4305391-8 (Version None)
Quarter: 2004Q1

REPORT INFORMATION
  Report Type: 
  Country: None (occurrence: None)
  Receive Date: 20040226
  Receipt Date: 20031001
  Transmission Date: 20041129
  Serious: Yes (Other)
  Sender: FDA-Public Use
  Company Number: US-BRISTOL-MYERS SQUIBB COMPANY-12398616

PATIENT
  Age: 49 Year
  Sex: Female
  Weight: 76 kg

DRUGS (6)
  1. CARBOPLATIN [Suspect]
     Indication: LUNG CANCER METASTATIC
     Dosage: PREVIOUSLY 260 MG SINCE JUN-2003
     Route: 042
     Dates: start: 20030930, end: 20030930
  2. TAXOL [Suspect]
     Indication: LUNG CANCER METASTATIC
     Dosage: PREVIOUSLY 150 MG SINCE JUN-2003
     Route: 042
     Dates: start: 20030930, end: 20030930
  3. ZOFRAN [Concomitant]
     Indication: PREMEDICATION
     Route: 042
  4. DECADRON [Concomitant]
     Indication: PREMEDICATION
     Route: 042
  5. BENADRYL [Concomitant]
     Indication: PREMEDICATION
     Route: 042
  6. TAGAMET [Concomitant]
     Indication: PREMEDICATION
     Route: 042

REACTIONS (2)
  - HYPERSENSITIVITY [None]
  - PLATELET COUNT DECREASED [None]
